FAERS Safety Report 25936180 (Version 1)
Quarter: 2025Q4

REPORT INFORMATION
  Report Type: Spontaneous
  Country: US (occurrence: US)
  Receive Date: 20251017
  Receipt Date: 20251017
  Transmission Date: 20260118
  Serious: No
  Sender: PFIZER
  Company Number: US-PFIZER INC-202500205214

PATIENT
  Age: 61 Year
  Sex: Female

DRUGS (18)
  1. IBRANCE [Suspect]
     Active Substance: PALBOCICLIB
     Indication: Breast cancer female
     Dosage: 125 MG, CYCLIC (DAILY FOR 21 DAYS THEN 7 DAYS OFF)
     Dates: start: 20250404
  2. AMPHETAMINE SULFATE\DEXTROAMPHETAMINE [Concomitant]
     Active Substance: AMPHETAMINE SULFATE\DEXTROAMPHETAMINE
     Dosage: UNK
  3. IBUPROFEN [Concomitant]
     Active Substance: IBUPROFEN
     Dosage: 600 MG
  4. VITAMIN D NOS [Concomitant]
     Active Substance: CHOLECALCIFEROL\ERGOCALCIFEROL
     Dosage: UNK
  5. PROCHLORPERAZINE MALEATE [Concomitant]
     Active Substance: PROCHLORPERAZINE MALEATE
     Dosage: UNK
  6. FAMOTIDINE [Concomitant]
     Active Substance: FAMOTIDINE
     Dosage: UNK
  7. ACETAMINOPHEN\CODEINE PHOSPHATE [Concomitant]
     Active Substance: ACETAMINOPHEN\CODEINE PHOSPHATE
     Dosage: UNK
  8. LOSARTAN [Concomitant]
     Active Substance: LOSARTAN
     Dosage: UNK
  9. PREDNISONE [Concomitant]
     Active Substance: PREDNISONE
     Dosage: UNK
  10. DULOXETINE [Concomitant]
     Active Substance: DULOXETINE
     Dosage: UNK
  11. CHLORHEXIDINE GLUCONATE [Concomitant]
     Active Substance: CHLORHEXIDINE GLUCONATE
     Dosage: UNK
  12. CELECOXIB [Concomitant]
     Active Substance: CELECOXIB
     Dosage: UNK
  13. ANASTROZOLE [Concomitant]
     Active Substance: ANASTROZOLE
     Dosage: UNK
  14. GEMFIBROZIL [Concomitant]
     Active Substance: GEMFIBROZIL
     Dosage: UNK
  15. ADDERALL [Concomitant]
     Active Substance: AMPHETAMINE ASPARTATE\AMPHETAMINE SULFATE\DEXTROAMPHETAMINE SACCHARATE\DEXTROAMPHETAMINE SULFATE
     Dosage: UNK
  16. VITAMIN B12 [Concomitant]
     Active Substance: CYANOCOBALAMIN
     Dosage: UNK
  17. VALACYCLOVIR [Concomitant]
     Active Substance: VALACYCLOVIR HYDROCHLORIDE
     Dosage: UNK
  18. ATENOLOL [Concomitant]
     Active Substance: ATENOLOL
     Dosage: UNK

REACTIONS (8)
  - Decreased appetite [Unknown]
  - Fatigue [Not Recovered/Not Resolved]
  - Headache [Unknown]
  - Stomatitis [Unknown]
  - Dyspnoea exertional [Unknown]
  - Brain fog [Unknown]
  - Pain [Unknown]
  - Wheezing [Unknown]
